FAERS Safety Report 20379524 (Version 1)
Quarter: 2022Q1

REPORT INFORMATION
  Report Type: Spontaneous
  Country: US (occurrence: None)
  Receive Date: 20220126
  Receipt Date: 20220126
  Transmission Date: 20220423
  Serious: Yes (unspecified)
  Sender: FDA-Public Use
  Company Number: None

PATIENT
  Age: 68 Year
  Sex: Male
  Weight: 65.25 kg

DRUGS (1)
  1. LEVOFLOXACIN [Suspect]
     Active Substance: LEVOFLOXACIN
     Indication: Urinary tract infection
     Dosage: FREQUENCY : AT BEDTIME;?
     Route: 048

REACTIONS (10)
  - Insomnia [None]
  - Joint swelling [None]
  - Vision blurred [None]
  - Headache [None]
  - Gait disturbance [None]
  - Arthralgia [None]
  - Arthralgia [None]
  - Hypertension [None]
  - Arthralgia [None]
  - Paraesthesia [None]

NARRATIVE: CASE EVENT DATE: 20211120
